FAERS Safety Report 8819768 (Version 2)
Quarter: 2015Q1

REPORT INFORMATION
  Report Type: Report from Study
  Country: US (occurrence: US)
  Receive Date: 20121001
  Receipt Date: 20150129
  Transmission Date: 20150721
  Serious: Yes (Other)
  Sender: FDA-Public Use
  Company Number: US-ROCHE-1130061

PATIENT
  Age: 71 Year
  Sex: Female
  Weight: 61.74 kg

DRUGS (10)
  1. DECADRON [Concomitant]
     Active Substance: DEXAMETHASONE
     Route: 065
  2. SURVANTA [Concomitant]
     Active Substance: BERACTANT
     Route: 065
  3. TAXOL [Concomitant]
     Active Substance: PACLITAXEL
     Route: 065
  4. ZANTAC [Concomitant]
     Active Substance: RANITIDINE HYDROCHLORIDE
     Route: 065
  5. HERCEPTIN [Suspect]
     Active Substance: TRASTUZUMAB
     Indication: BREAST CANCER METASTATIC
     Dosage: LOADING DOSE
     Route: 042
     Dates: start: 19981214
  6. ZOFRAN [Concomitant]
     Active Substance: ONDANSETRON HYDROCHLORIDE
     Route: 065
  7. BENADRYL [Concomitant]
     Active Substance: DIPHENHYDRAMINE HYDROCHLORIDE
     Route: 065
  8. HERCEPTIN [Suspect]
     Active Substance: TRASTUZUMAB
     Dosage: MAINTENANCE DOSE
     Route: 042
  9. SEPTIN [Concomitant]
  10. CEFTIN [Concomitant]
     Active Substance: CEFUROXIME AXETIL

REACTIONS (8)
  - Pericardial effusion [Unknown]
  - Dyspnoea [Unknown]
  - Pyrexia [Unknown]
  - Ejection fraction decreased [Unknown]
  - Alopecia [Unknown]
  - Fatigue [Unknown]
  - Pleural effusion [Unknown]
  - Pain [Unknown]

NARRATIVE: CASE EVENT DATE: 19990308
